FAERS Safety Report 8506070-3 (Version None)
Quarter: 2012Q3

REPORT INFORMATION
  Report Type: 
  Country: None (occurrence: None)
  Receive Date: 20120712
  Receipt Date: 20120711
  Transmission Date: 20120928
  Serious: Yes (Hospitalization)
  Sender: FDA-Public Use
  Company Number: CN-ROCHE-1072173

PATIENT
  Age: 22 Year
  Sex: Male

DRUGS (1)
  1. PEGASYS [Suspect]
     Indication: HEPATITIS C
     Route: 058
     Dates: start: 20110101, end: 20120501

REACTIONS (3)
  - NEUROPATHY PERIPHERAL [None]
  - MYASTHENIA GRAVIS [None]
  - VOCAL CORD PARALYSIS [None]
